FAERS Safety Report 15625769 (Version 1)
Quarter: 2018Q4

REPORT INFORMATION
  Report Type: Spontaneous
  Country: US (occurrence: US)
  Receive Date: 20181115
  Receipt Date: 20181115
  Transmission Date: 20190205
  Serious: Yes (Other)
  Sender: FDA-Public Use
  Company Number: None

PATIENT
  Age: 36 Year
  Sex: Male
  Weight: 146.25 kg

DRUGS (9)
  1. HYSINGLA ER [Concomitant]
     Active Substance: HYDROCODONE BITARTRATE
  2. DULOXETINE 20MG SOLCO NDC# 43547-0379 [Suspect]
     Active Substance: DULOXETINE
     Indication: BACK PAIN
     Dosage: ?          QUANTITY:1 TABLET(S);?
     Route: 048
  3. DULOXETINE. [Concomitant]
     Active Substance: DULOXETINE
  4. LYRICA [Concomitant]
     Active Substance: PREGABALIN
  5. MOBIC [Concomitant]
     Active Substance: MELOXICAM
  6. FLONASE [Concomitant]
     Active Substance: FLUTICASONE PROPIONATE
  7. EXCEDRIN [Concomitant]
     Active Substance: ACETAMINOPHEN\ASPIRIN\CAFFEINE
  8. OXYCODONE [Concomitant]
     Active Substance: OXYCODONE
  9. LISINOPRIL. [Concomitant]
     Active Substance: LISINOPRIL

REACTIONS (6)
  - Amnesia [None]
  - Hyperhidrosis [None]
  - Fall [None]
  - Disorientation [None]
  - Somnambulism [None]
  - Injury [None]

NARRATIVE: CASE EVENT DATE: 20181113
